FAERS Safety Report 9926706 (Version 1)
Quarter: 2014Q1

REPORT INFORMATION
  Report Type: Spontaneous
  Country: US (occurrence: US)
  Receive Date: 20140226
  Receipt Date: 20140226
  Transmission Date: 20141002
  Serious: No
  Sender: FDA-Public Use
  Company Number: US-AMGEN-USASP2013078008

PATIENT
  Age: 55 Year
  Sex: Male

DRUGS (2)
  1. ENBREL [Suspect]
     Indication: RHEUMATOID ARTHRITIS
     Dosage: 50 MG, QWK
     Route: 065
     Dates: start: 20130801
  2. HYDROXYCHLOROQUINE [Concomitant]
     Dosage: 400 MG, QD
     Dates: start: 201305

REACTIONS (4)
  - Immune system disorder [Not Recovered/Not Resolved]
  - Laceration [Not Recovered/Not Resolved]
  - Tenderness [Not Recovered/Not Resolved]
  - Impaired healing [Not Recovered/Not Resolved]
